FAERS Safety Report 5498673-8 (Version None)
Quarter: 2007Q4

REPORT INFORMATION
  Report Type: 
  Country: None (occurrence: None)
  Receive Date: 20071026
  Receipt Date: 20071017
  Transmission Date: 20080405
  Serious: Yes (Death, Hospitalization)
  Sender: FDA-Public Use
  Company Number: FR-WYE-H00702207

PATIENT
  Sex: Female

DRUGS (9)
  1. CORDARONE [Suspect]
     Indication: ATRIAL FIBRILLATION
     Route: 048
     Dates: end: 20070318
  2. CORDARONE [Suspect]
     Indication: ARRHYTHMIA
  3. ROCEPHIN [Suspect]
     Route: 042
     Dates: start: 20070305, end: 20070311
  4. FLAGYL [Suspect]
     Route: 048
     Dates: start: 20070226, end: 20070312
  5. LEVOTHYROX [Suspect]
     Dosage: UNSPECIFIED
     Route: 048
     Dates: end: 20070321
  6. COUMADIN [Suspect]
     Indication: ARRHYTHMIA
     Route: 048
     Dates: start: 19970101, end: 20070306
  7. COUMADIN [Suspect]
     Indication: ATRIAL FIBRILLATION
     Dosage: 1/4 TABLET
     Route: 048
     Dates: start: 20070309
  8. COUMADIN [Suspect]
     Indication: CARDIAC VALVE PROSTHESIS USER
  9. INNOHEP [Suspect]
     Route: 058
     Dates: start: 20070309, end: 20070315

REACTIONS (4)
  - CONCOMITANT DISEASE PROGRESSION [None]
  - HAEMATURIA [None]
  - INTERNATIONAL NORMALISED RATIO INCREASED [None]
  - UTERINE NEOPLASM [None]
